FAERS Safety Report 7416226-9 (Version None)
Quarter: 2011Q2

REPORT INFORMATION
  Report Type: 
  Country: None (occurrence: None)
  Receive Date: 20110405
  Receipt Date: 20110322
  Transmission Date: 20111010
  Serious: Yes (Death, Other)
  Sender: FDA-Public Use
  Company Number: 2011MA002742

PATIENT
  Age: 22 Year
  Sex: Female
  Weight: 67.8 kg

DRUGS (3)
  1. FLUVOXAMINE MALEATE TABLETS, 100 MG (PUREPAC) [Suspect]
     Dosage: 1600 MG; 1X; PO
     Route: 048
  2. TEGRETOL [Suspect]
     Dosage: 2800 MG;1X;PO
     Route: 048
  3. MYSLEE (ZOLPIDEM TARTRATE) [Suspect]
     Dosage: 60 MG;1X;PO
     Route: 048

REACTIONS (7)
  - HEPATIC CONGESTION [None]
  - TOXICITY TO VARIOUS AGENTS [None]
  - PULMONARY CONGESTION [None]
  - OVERDOSE [None]
  - VOMITING [None]
  - SPLEEN CONGESTION [None]
  - RENAL DISORDER [None]
